FAERS Safety Report 10191314 (Version 1)
Quarter: 2014Q2

REPORT INFORMATION
  Report Type: Spontaneous
  Country: FI (occurrence: None)
  Receive Date: 20140521
  Receipt Date: 20140521
  Transmission Date: 20141212
  Serious: Yes (Other)
  Sender: FDA-Public Use
  Company Number: FI-20140005

PATIENT
  Age: 23 Year
  Sex: Female

DRUGS (1)
  1. DOTAREM (GADOTERIC ACID) [Suspect]
     Indication: NUCLEAR MAGNETIC RESONANCE IMAGING
     Dosage: 16 ML (16 ML, 1 IN 1 D), INTRAVENOUS (NOT OTHERWISE SPECIFIED)
     Route: 042
     Dates: start: 20140414, end: 20140414

REACTIONS (7)
  - Anaphylactic reaction [None]
  - Abdominal pain upper [None]
  - Loss of consciousness [None]
  - Muscle spasms [None]
  - Hyperventilation [None]
  - Malaise [None]
  - Hyperhidrosis [None]
